FAERS Safety Report 20168180 (Version 1)
Quarter: 2021Q4

REPORT INFORMATION
  Report Type: Spontaneous
  Country: ZA (occurrence: ZA)
  Receive Date: 20211210
  Receipt Date: 20211210
  Transmission Date: 20220303
  Serious: Yes (Hospitalization, Other)
  Sender: FDA-Public Use
  Company Number: ZA-ALKEM LABORATORIES LIMITED-ZA-ALKEM-2021-00646

PATIENT

DRUGS (3)
  1. ISONIAZID [Suspect]
     Active Substance: ISONIAZID
     Indication: Antibiotic prophylaxis
     Dosage: 15 MILLIGRAM/KILOGRAM, ONCE WEEKLY
     Route: 048
  2. RIFAPENTINE [Suspect]
     Active Substance: RIFAPENTINE
     Indication: Antibiotic prophylaxis
     Dosage: UNK UNK, ONCE WEEKLY
     Route: 048
  3. PYRIDOXINE [Concomitant]
     Active Substance: PYRIDOXINE
     Indication: Supplementation therapy
     Dosage: 25 MILLIGRAM, ONCE WEEKLY
     Route: 048

REACTIONS (2)
  - Seizure [Unknown]
  - Accidental overdose [Unknown]
